FAERS Safety Report 11167599 (Version 3)
Quarter: 2015Q2

REPORT INFORMATION
  Report Type: Spontaneous
  Country: JP (occurrence: JP)
  Receive Date: 20150605
  Receipt Date: 20150623
  Transmission Date: 20150821
  Serious: No
  Sender: FDA-Public Use
  Company Number: JP-PFIZER INC-2015185154

PATIENT
  Age: 36 Year
  Sex: Female

DRUGS (11)
  1. METHYCOBAL [Concomitant]
     Active Substance: METHYLCOBALAMIN
  2. MOHRUS [Concomitant]
     Active Substance: KETOPROFEN
     Route: 003
  3. LOCOID [Concomitant]
     Active Substance: HYDROCORTISONE BUTYRATE
     Route: 003
  4. MAGLAX [Concomitant]
     Active Substance: MAGNESIUM OXIDE
     Route: 048
  5. CINAL [Concomitant]
     Active Substance: ASCORBIC ACID\CALCIUM PANTOTHENATE
     Route: 048
  6. FLAVITAN [Concomitant]
     Active Substance: FLAVIN ADENINE DINUCLEOTIDE
  7. MIYA-BM [Concomitant]
     Active Substance: CLOSTRIDIUM BUTYRICUM SPORES STRAIN M-55
  8. BIOTIN [Concomitant]
     Active Substance: BIOTIN
  9. PYDOXAL [Concomitant]
     Active Substance: PYRIDOXAL
  10. LYRICA [Suspect]
     Active Substance: PREGABALIN
     Indication: SURGERY
     Dosage: 150 MG, DAILY
     Route: 048
  11. NEUROTROPIN [Concomitant]
     Active Substance: NEUROTROPIN

REACTIONS (6)
  - Hypoacusis [Recovering/Resolving]
  - Rhinitis [Unknown]
  - Somnolence [Recovered/Resolved]
  - Dizziness [Not Recovered/Not Resolved]
  - Product use issue [Unknown]
  - Balance disorder [Not Recovered/Not Resolved]

NARRATIVE: CASE EVENT DATE: 20150424
